FAERS Safety Report 13576211 (Version 2)
Quarter: 2017Q2

REPORT INFORMATION
  Report Type: Spontaneous
  Country: JP (occurrence: JP)
  Receive Date: 20170524
  Receipt Date: 20170525
  Transmission Date: 20170830
  Serious: Yes (Life-Threatening, Hospitalization, Other)
  Sender: FDA-Public Use
  Company Number: JP-ELI_LILLY_AND_COMPANY-JP201705006086

PATIENT
  Age: 67 Year
  Sex: Male

DRUGS (4)
  1. DONEPEZIL. [Concomitant]
     Active Substance: DONEPEZIL
     Indication: NEUROPSYCHIATRIC SYMPTOMS
     Dosage: 10 MG, DAILY
     Route: 048
  2. QUETIAPINE. [Suspect]
     Active Substance: QUETIAPINE
     Indication: NEUROPSYCHIATRIC SYMPTOMS
     Dosage: 50 MG, DAILY
     Route: 048
  3. ZYPREXA [Suspect]
     Active Substance: OLANZAPINE
     Indication: NEUROPSYCHIATRIC SYMPTOMS
     Dosage: 10 MG, DAILY
     Route: 048
  4. SODIUM PICOSULFATE [Suspect]
     Active Substance: SODIUM PICOSULFATE
     Indication: CONSTIPATION
     Dosage: 15 MG, DAILY
     Route: 048

REACTIONS (4)
  - Constipation [Recovered/Resolved]
  - Abdominal compartment syndrome [Recovered/Resolved]
  - Bacterial translocation [Unknown]
  - Off label use [Unknown]
